FAERS Safety Report 7292976-2 (Version None)
Quarter: 2011Q1

REPORT INFORMATION
  Report Type: 
  Country: None (occurrence: None)
  Receive Date: 20110209
  Receipt Date: 20110209
  Transmission Date: 20110831
  Serious: No
  Sender: FDA-Public Use
  Company Number: None

PATIENT
  Age: 80 Year
  Sex: Female
  Weight: 71.6683 kg

DRUGS (1)
  1. WELCHOL [Suspect]
     Indication: BLOOD CHOLESTEROL INCREASED
     Dosage: SIX AT BEDTIME
     Dates: start: 20101230, end: 20110201

REACTIONS (5)
  - CONSTIPATION [None]
  - MYALGIA [None]
  - BACK PAIN [None]
  - NAUSEA [None]
  - DYSPHAGIA [None]
